FAERS Safety Report 5266194-3 (Version None)
Quarter: 2007Q1

REPORT INFORMATION
  Report Type: 
  Country: None (occurrence: None)
  Receive Date: 20070315
  Receipt Date: 20070313
  Transmission Date: 20070707
  Serious: Yes (Death, Hospitalization)
  Sender: FDA-Public Use
  Company Number: 2007AP01389

PATIENT
  Age: 72 Year
  Sex: Male

DRUGS (1)
  1. MERONEM [Suspect]
     Indication: SEPSIS
     Route: 042
     Dates: start: 20070226, end: 20070227

REACTIONS (3)
  - DEATH [None]
  - POOR QUALITY DRUG ADMINISTERED [None]
  - PYREXIA [None]
